FAERS Safety Report 13711880 (Version 1)
Quarter: 2017Q3

REPORT INFORMATION
  Report Type: Spontaneous
  Country: US (occurrence: US)
  Receive Date: 20170703
  Receipt Date: 20170703
  Transmission Date: 20171127
  Serious: Yes (Disabling)
  Sender: FDA-Public Use
  Company Number: None

PATIENT
  Age: 61 Year
  Sex: Female
  Weight: 76.5 kg

DRUGS (5)
  1. TOPIRAMATE. [Suspect]
     Active Substance: TOPIRAMATE
     Indication: PAIN MANAGEMENT
     Dosage: ?          QUANTITY:1 TABLET(S);OTHER ROUTE:ORAL?
     Route: 048
     Dates: start: 20170629, end: 20170629
  2. PROBIOTC [Concomitant]
  3. MULTI VITAMIN [Concomitant]
     Active Substance: VITAMINS
  4. VITAMIN B COMPLEX [Concomitant]
     Active Substance: CYANOCOBALAMIN\DEXPANTHENOL\NIACINAMIDE\PYRIDOXINE HYDROCHLORIDE\RIBOFLAVIN 5^-PHOSPHATE SODIUM\THIAMINE HYDROCHLORIDE\VITAMIN B COMPLEX
  5. VITAMIN C [Concomitant]
     Active Substance: ASCORBIC ACID

REACTIONS (5)
  - Verbal abuse [None]
  - Feeling abnormal [None]
  - Joint swelling [None]
  - Aggression [None]
  - Peripheral swelling [None]

NARRATIVE: CASE EVENT DATE: 20170629
